FAERS Safety Report 4872083-6 (Version None)
Quarter: 2005Q4

REPORT INFORMATION
  Report Type: 
  Country: None (occurrence: None)
  Receive Date: 20051230
  Receipt Date: 20051220
  Transmission Date: 20060501
  Serious: Yes (Other)
  Sender: FDA-Public Use
  Company Number: 2005146511

PATIENT
  Age: 45 Year
  Sex: Female
  Weight: 65.7716 kg

DRUGS (3)
  1. GENOTROPIN [Suspect]
     Indication: HYPOPITUITARISM
     Dosage: 0.2 MG (0.2 MG, DAILY)
     Dates: start: 20030101, end: 20040101
  2. VIVELLE [Concomitant]
  3. SYNTHROID [Concomitant]

REACTIONS (8)
  - CONDITION AGGRAVATED [None]
  - EMPTY SELLA SYNDROME [None]
  - FATIGUE [None]
  - HEADACHE [None]
  - LOCALISED OEDEMA [None]
  - OEDEMA PERIPHERAL [None]
  - SYSTEMIC LUPUS ERYTHEMATOSUS [None]
  - WEIGHT INCREASED [None]
